FAERS Safety Report 23139386 (Version 1)
Quarter: 2023Q4

REPORT INFORMATION
  Report Type: Spontaneous
  Country: US (occurrence: US)
  Receive Date: 20231102
  Receipt Date: 20231102
  Transmission Date: 20240109
  Serious: Yes (Other)
  Sender: FDA-Public Use
  Company Number: US-SUN PHARMACEUTICAL INDUSTRIES LTD-2023R1-400805

PATIENT
  Age: 47 Year
  Sex: Female

DRUGS (2)
  1. CLOZAPINE [Suspect]
     Active Substance: CLOZAPINE
     Indication: Catatonia
     Dosage: 50 MILLIGRAM, DAILY, IN MORNING
     Route: 065
  2. CLOZAPINE [Suspect]
     Active Substance: CLOZAPINE
     Indication: Schizoaffective disorder
     Dosage: 75 MILLIGRAM, DAILY, IN EVENING
     Route: 065

REACTIONS (4)
  - Constipation [Recovering/Resolving]
  - Ileus [Recovered/Resolved]
  - Hepatomegaly [Unknown]
  - Cholelithiasis [Unknown]
